FAERS Safety Report 8777136 (Version 1)
Quarter: 2012Q4

REPORT INFORMATION
  Report Type: 
  Country: GB (occurrence: KR)
  Receive Date: 20120911
  Receipt Date: 20120911
  Transmission Date: 20130627
  Serious: Yes (Other)
  Sender: FDA-Public Use
  Company Number: KR-BRISTOL-MYERS SQUIBB COMPANY-16923609

PATIENT
  Age: 60 Year
  Sex: Male

DRUGS (4)
  1. ENTECAVIR [Suspect]
     Indication: HEPATITIS B
     Dates: start: 20100820, end: 20120521
  2. HEPSERA [Suspect]
     Indication: HEPATITIS B
     Dosage: tabs
     Route: 065
     Dates: start: 20100820, end: 20120521
  3. VIREAD [Suspect]
     Indication: HEPATITIS B
     Dosage: tabs
21My12-17Jun12 27dys
18Jun12-ong
freq: every alternate dy
     Route: 048
     Dates: start: 20120521
  4. SEBIVO [Suspect]
     Indication: HEPATITIS B
     Route: 048
     Dates: start: 20120521

REACTIONS (6)
  - Blood creatine phosphokinase increased [Unknown]
  - Blood creatinine increased [Unknown]
  - Eyelid oedema [Recovering/Resolving]
  - Therapeutic response decreased [Unknown]
  - Asthenia [Not Recovered/Not Resolved]
  - Fatigue [Not Recovered/Not Resolved]
